FAERS Safety Report 7137798-8 (Version None)
Quarter: 2010Q4

REPORT INFORMATION
  Report Type: 
  Country: None (occurrence: None)
  Receive Date: 20101103
  Receipt Date: 20100409
  Transmission Date: 20110411
  Serious: Yes (Hospitalization)
  Sender: FDA-Public Use
  Company Number: 2010S1000194

PATIENT
  Age: 64 Year
  Sex: Male
  Weight: 87 kg

DRUGS (2)
  1. DAPTOMYCIN [Suspect]
     Indication: INFECTION PROPHYLAXIS
     Dosage: 4 MG/KG; IV
     Route: 042
     Dates: start: 20090918, end: 20090918
  2. CEFUROXIME [Concomitant]

REACTIONS (2)
  - ATRIAL FIBRILLATION [None]
  - TACHYCARDIA [None]
